FAERS Safety Report 17990570 (Version 6)
Quarter: 2020Q4

REPORT INFORMATION
  Report Type: Spontaneous
  Country: DE (occurrence: DE)
  Receive Date: 20200707
  Receipt Date: 20201105
  Transmission Date: 20210113
  Serious: Yes (Hospitalization, Other)
  Sender: FDA-Public Use
  Company Number: DE-REGENERON PHARMACEUTICALS, INC.-2020-48422

PATIENT

DRUGS (2)
  1. EYLEA [Suspect]
     Active Substance: AFLIBERCEPT
     Indication: AGE-RELATED MACULAR DEGENERATION
     Dosage: INJECTION RIGHT EYE, DOSAGE AND FREQUENCY UNKNOWN,
     Route: 031
     Dates: start: 20200416
  2. EYLEA [Suspect]
     Active Substance: AFLIBERCEPT
     Dosage: INJECTION LEFT EYE, DOSAGE AND FREQUENCY UNKNOWN
     Dates: start: 20190715

REACTIONS (11)
  - Intraocular pressure increased [Unknown]
  - Ocular vasculitis [Unknown]
  - Retinal oedema [Unknown]
  - Blindness [Not Recovered/Not Resolved]
  - Drug hypersensitivity [Unknown]
  - Endophthalmitis [Unknown]
  - Retinal haemorrhage [Unknown]
  - Blindness unilateral [Not Recovered/Not Resolved]
  - Haemorrhagic vasculitis [Unknown]
  - Endophthalmitis [Unknown]
  - Intraocular pressure increased [Unknown]

NARRATIVE: CASE EVENT DATE: 201907
